FAERS Safety Report 10222383 (Version 1)
Quarter: 2014Q2

REPORT INFORMATION
  Report Type: Spontaneous
  Country: DK (occurrence: DK)
  Receive Date: 20140606
  Receipt Date: 20140606
  Transmission Date: 20141212
  Serious: Yes (Hospitalization, Other)
  Sender: FDA-Public Use
  Company Number: DK-B.I. PHARMACEUTICALS,INC./RIDGEFIELD-2014-BI-25000DB

PATIENT
  Age: 33 Year
  Sex: Male
  Weight: 55 kg

DRUGS (3)
  1. PRADAXA [Suspect]
     Indication: ATRIAL FIBRILLATION
     Dosage: 300 MG
     Route: 048
     Dates: start: 201402, end: 20140414
  2. ATORVASTATIN ACTAVIS [Concomitant]
     Indication: DYSLIPIDAEMIA
     Dosage: 40 MG
     Route: 048
  3. CENTYL MED KALIUMKLORID [Concomitant]
     Indication: HYPERTENSION
     Dosage: STRENGTH AND DAILY DOSE:2.5+573MILLIGRAM
     Route: 065

REACTIONS (2)
  - Acute myocardial infarction [Recovered/Resolved with Sequelae]
  - Acute myocardial infarction [Unknown]
